FAERS Safety Report 10072780 (Version 1)
Quarter: 2014Q2

REPORT INFORMATION
  Report Type: Spontaneous
  Country: JP (occurrence: None)
  Receive Date: 20140409
  Receipt Date: 20140409
  Transmission Date: 20141212
  Serious: Yes (Hospitalization)
  Sender: FDA-Public Use
  Company Number: KAD201404-000387

PATIENT
  Age: 60 Year
  Sex: Female

DRUGS (5)
  1. ANASTROZOLE [Suspect]
     Indication: BREAST CANCER
  2. PACLITAXEL [Suspect]
     Indication: BREAST CANCER
  3. TAMOXIFEN [Suspect]
     Indication: BREAST CANCER
  4. ZOLEDRONIC ACID (ZOLEDRONIC ACID) [Suspect]
     Indication: BREAST CANCER
  5. EPIRUBICIN PLUS CYCLOPHOSPHAMIDE [Suspect]

REACTIONS (1)
  - VIIth nerve paralysis [None]
